FAERS Safety Report 7136969-4 (Version None)
Quarter: 2010Q4

REPORT INFORMATION
  Report Type: 
  Country: None (occurrence: None)
  Receive Date: 20101206
  Receipt Date: 20100910
  Transmission Date: 20110411
  Serious: Yes (Other)
  Sender: FDA-Public Use
  Company Number: US-RB-013910-10

PATIENT
  Age: 41 Year
  Sex: Female

DRUGS (1)
  1. DELSYM [Suspect]
     Indication: PRODUCT USED FOR UNKNOWN INDICATION
     Dosage: PATIENT DRANK ENTIRE BOTTLE.
     Route: 048

REACTIONS (3)
  - DRUG ABUSE [None]
  - FEELING ABNORMAL [None]
  - HYPOAESTHESIA [None]
